FAERS Safety Report 9117902 (Version 1)
Quarter: 2013Q1

REPORT INFORMATION
  Report Type: Spontaneous
  Country: FR (occurrence: FR)
  Receive Date: 20130208
  Receipt Date: 20130208
  Transmission Date: 20140127
  Serious: Yes (Hospitalization)
  Sender: FDA-Public Use
  Company Number: FR-PFIZER INC-2013048033

PATIENT
  Age: 11 Year
  Sex: Female

DRUGS (8)
  1. BACTRIM [Suspect]
     Indication: NASOPHARYNGITIS
     Dosage: 1 DF, 2X/DAY
     Route: 048
     Dates: start: 20121214, end: 20121217
  2. BACTRIM [Suspect]
     Indication: PYREXIA
  3. RHINADVIL [Suspect]
     Indication: NASOPHARYNGITIS
     Dosage: 2 DF, 2X/DAY
     Route: 048
     Dates: start: 20121214, end: 20121217
  4. RHINADVIL [Suspect]
     Indication: PYREXIA
  5. PREDNISOLONE [Suspect]
     Indication: NASOPHARYNGITIS
     Dosage: 1 DF, 3X/DAY
     Route: 045
     Dates: start: 20121214, end: 20121217
  6. PREDNISOLONE [Suspect]
     Indication: PYREXIA
  7. TUSSIDANE [Suspect]
     Indication: NASOPHARYNGITIS
     Dosage: 15 ML, 3X/DAY
     Route: 048
     Dates: start: 20121214, end: 20121217
  8. TUSSIDANE [Suspect]
     Indication: PYREXIA

REACTIONS (6)
  - Hallucination [Recovered/Resolved]
  - Abnormal behaviour [Recovered/Resolved]
  - Anxiety [Recovered/Resolved]
  - Sleep disorder [Recovered/Resolved]
  - Confusional state [Recovered/Resolved]
  - Agitation [Recovered/Resolved]
